FAERS Safety Report 25786026 (Version 1)
Quarter: 2025Q3

REPORT INFORMATION
  Report Type: Spontaneous
  Country: US (occurrence: None)
  Receive Date: 20250910
  Receipt Date: 20250910
  Transmission Date: 20251021
  Serious: Yes (Hospitalization)
  Sender: FDA-CTU
  Company Number: None

PATIENT
  Age: 43 Year
  Sex: Male
  Weight: 107.5 kg

DRUGS (4)
  1. FLUOROURACIL [Suspect]
     Active Substance: FLUOROURACIL
     Dates: start: 20250707
  2. FLOXURIDINE [Suspect]
     Active Substance: FLOXURIDINE
     Dates: start: 20250707
  3. CAMPTOSAR [Suspect]
     Active Substance: IRINOTECAN HYDROCHLORIDE
     Dates: start: 20250707
  4. PANITUMUMAB [Suspect]
     Active Substance: PANITUMUMAB
     Dates: start: 20250528

REACTIONS (4)
  - Back pain [None]
  - Drug ineffective [None]
  - Metastatic neoplasm [None]
  - Metastases to spine [None]

NARRATIVE: CASE EVENT DATE: 20250716
